FAERS Safety Report 4700001-X (Version None)
Quarter: 2005Q2

REPORT INFORMATION
  Report Type: 
  Country: None (occurrence: None)
  Receive Date: 20050623
  Receipt Date: 20050609
  Transmission Date: 20051028
  Serious: Yes (Hospitalization, Other)
  Sender: FDA-Public Use
  Company Number: 200313855BCC

PATIENT
  Age: 77 Year
  Sex: Male
  Weight: 103.9644 kg

DRUGS (14)
  1. ALEVE [Suspect]
     Indication: DEMENTIA ALZHEIMER'S TYPE
     Dosage: BID, ORAL
     Route: 048
     Dates: start: 20020709, end: 20030929
  2. ALEVE [Suspect]
     Indication: PROPHYLAXIS
     Dosage: BID, ORAL
     Route: 048
     Dates: start: 20020709, end: 20030929
  3. FLOVENT [Concomitant]
  4. SEREVENT [Concomitant]
  5. LIPITOR [Concomitant]
  6. TERAZOSIN HCL [Concomitant]
  7. NARINE REPETABS [Concomitant]
  8. VALTREX [Concomitant]
  9. VITAMIN E [Concomitant]
  10. THERAGRAN-M [Concomitant]
  11. ASPIRIN [Concomitant]
  12. DOVONEX [Concomitant]
  13. DEXAMETHASONE [Concomitant]
  14. PREDNISONE TAB [Concomitant]

REACTIONS (10)
  - ARTERIAL DISORDER [None]
  - BLOOD PRESSURE INCREASED [None]
  - CAROTID ARTERY OCCLUSION [None]
  - CAROTID ARTERY THROMBOSIS [None]
  - CEREBROVASCULAR ACCIDENT [None]
  - FACIAL PALSY [None]
  - HEMIPARESIS [None]
  - HYPERPHAGIA [None]
  - ULCER [None]
  - WEIGHT INCREASED [None]
